FAERS Safety Report 7862493-7 (Version None)
Quarter: 2011Q4

REPORT INFORMATION
  Report Type: 
  Country: None (occurrence: None)
  Receive Date: 20111027
  Receipt Date: 20101102
  Transmission Date: 20120403
  Serious: No
  Sender: FDA-Public Use
  Company Number: US-AMGEN-USASP2010003011

PATIENT
  Sex: Female

DRUGS (2)
  1. ENBREL [Suspect]
     Indication: PSORIATIC ARTHROPATHY
     Dates: start: 20100401
  2. METHOTREXATE [Concomitant]
     Dates: start: 20091001

REACTIONS (9)
  - ARTHRALGIA [None]
  - INJECTION SITE SWELLING [None]
  - BRONCHITIS [None]
  - PSORIATIC ARTHROPATHY [None]
  - INJECTION SITE RECALL REACTION [None]
  - MEMORY IMPAIRMENT [None]
  - PAIN IN EXTREMITY [None]
  - INJECTION SITE URTICARIA [None]
  - INJECTION SITE ERYTHEMA [None]
